FAERS Safety Report 11966014 (Version 1)
Quarter: 2016Q1

REPORT INFORMATION
  Report Type: Spontaneous
  Country: US (occurrence: US)
  Receive Date: 20160127
  Receipt Date: 20160127
  Transmission Date: 20160526
  Serious: Yes (Hospitalization)
  Sender: FDA-Public Use
  Company Number: US-SA-2016SA013717

PATIENT
  Age: 45 Year
  Sex: Female
  Weight: 99 kg

DRUGS (9)
  1. FOLIC ACID. [Concomitant]
     Active Substance: FOLIC ACID
  2. BIOTENE (PASTE) [Concomitant]
     Active Substance: SODIUM MONOFLUOROPHOSPHATE
  3. URSODIOL. [Concomitant]
     Active Substance: URSODIOL
  4. FAMOTIDINE. [Concomitant]
     Active Substance: FAMOTIDINE
  5. CLOFARABINE [Suspect]
     Active Substance: CLOFARABINE
     Indication: MYELODYSPLASTIC SYNDROME
     Route: 042
     Dates: start: 20151130, end: 20151204
  6. MELPHALAN [Suspect]
     Active Substance: MELPHALAN
     Route: 042
     Dates: start: 20151205, end: 20151205
  7. SIROLIMUS. [Concomitant]
     Active Substance: SIROLIMUS
  8. CHOLECALCIFEROL [Concomitant]
     Active Substance: CHOLECALCIFEROL
  9. TACROLIMUS. [Concomitant]
     Active Substance: TACROLIMUS

REACTIONS (4)
  - Swelling [Recovering/Resolving]
  - Embolism [Recovering/Resolving]
  - Venous thrombosis [Recovering/Resolving]
  - Thrombophlebitis septic [Recovering/Resolving]

NARRATIVE: CASE EVENT DATE: 20160107
